FAERS Safety Report 5506121-4 (Version None)
Quarter: 2007Q4

REPORT INFORMATION
  Report Type: 
  Country: None (occurrence: None)
  Receive Date: 20071105
  Receipt Date: 20071102
  Transmission Date: 20080405
  Serious: Yes (Other)
  Sender: FDA-Public Use
  Company Number: ES-BRISTOL-MYERS SQUIBB COMPANY-13944889

PATIENT
  Age: 46 Year
  Sex: Female

DRUGS (3)
  1. STAVUDINE [Suspect]
     Indication: HIV INFECTION
     Dates: start: 20030324, end: 20030327
  2. VIDEX [Suspect]
     Indication: HIV INFECTION
     Dates: start: 20030324, end: 20030327
  3. LOPINAVIR AND RITONAVIR [Suspect]
     Dates: start: 20030324, end: 20030327

REACTIONS (2)
  - DIARRHOEA [None]
  - GASTROINTESTINAL DISORDER [None]
